FAERS Safety Report 24525578 (Version 1)
Quarter: 2024Q4

REPORT INFORMATION
  Report Type: Spontaneous
  Country: GB (occurrence: GB)
  Receive Date: 20241020
  Receipt Date: 20241020
  Transmission Date: 20250115
  Serious: Yes (Other)
  Sender: AUROBINDO
  Company Number: GB-MHRA-MED-202410091441353360-BDPVM

PATIENT
  Sex: Male
  Weight: 79 kg

DRUGS (1)
  1. ALFUZOSIN [Suspect]
     Active Substance: ALFUZOSIN
     Indication: Benign prostatic hyperplasia
     Dosage: 10 MILLIGRAM, ONCE A DAY
     Route: 065
     Dates: start: 20240531, end: 20240601

REACTIONS (1)
  - Arrhythmia [Recovered/Resolved]

NARRATIVE: CASE EVENT DATE: 20240531
